FAERS Safety Report 7773019 (Version 2)
Quarter: 2012Q4

REPORT INFORMATION
  Report Type: Report from Study
  Country: GR (occurrence: GR)
  Receive Date: 20110125
  Receipt Date: 20120920
  Transmission Date: 20130627
  Serious: Yes (Death, Other)
  Sender: FDA-Public Use
  Company Number: GR-PFIZER INC-2011005486

PATIENT
  Age: 93 Year
  Sex: Female
  Weight: 50 kg

DRUGS (3)
  1. FLAGYL [Suspect]
     Indication: ABDOMINAL INFECTION
     Dosage: 500 mg, 3x/day
     Route: 042
     Dates: start: 20091215, end: 20091221
  2. CIPROXIN [Suspect]
     Indication: ABDOMINAL INFECTION
     Dosage: 500 mg, 2x/day
     Route: 042
     Dates: start: 20091215, end: 20091221
  3. ASPIRINE [Concomitant]
     Indication: PAIN
     Dosage: Unknown
     Route: 048
     Dates: start: 20091210, end: 20091214

REACTIONS (1)
  - Myocardial infarction [Fatal]
